FAERS Safety Report 7648349-3 (Version None)
Quarter: 2011Q3

REPORT INFORMATION
  Report Type: 
  Country: None (occurrence: None)
  Receive Date: 20110801
  Receipt Date: 20110727
  Transmission Date: 20111222
  Serious: Yes (Death)
  Sender: FDA-Public Use
  Company Number: US-PFIZER INC-2011170942

PATIENT
  Sex: Female

DRUGS (3)
  1. AMLODIPINE AND ATORVASTATIN [Suspect]
     Indication: HYPERTENSION
     Dosage: 10 MG/20 MG, 1X/DAY
     Route: 048
     Dates: start: 20070603
  2. AMLODIPINE AND ATORVASTATIN [Suspect]
     Indication: HYPERLIPIDAEMIA
  3. PALMAZ GENESIS [Suspect]
     Dosage: UNK
     Dates: start: 20070601

REACTIONS (1)
  - CHRONIC OBSTRUCTIVE PULMONARY DISEASE [None]
